FAERS Safety Report 8012688-7 (Version None)
Quarter: 2011Q4

REPORT INFORMATION
  Report Type: 
  Country: None (occurrence: None)
  Receive Date: 20111223
  Receipt Date: 20111223
  Transmission Date: 20120403
  Serious: Yes (Life-Threatening, Hospitalization, Disabling)
  Sender: FDA-Public Use
  Company Number: None

PATIENT
  Sex: Male
  Weight: 78 kg

DRUGS (6)
  1. PRADAXA [Suspect]
     Indication: HEART VALVE REPLACEMENT
     Dosage: DABIGATRAN 75 MG PRADAXA PO
     Route: 048
     Dates: start: 20111115
  2. PRADAXA [Suspect]
     Indication: ATRIAL FIBRILLATION
     Dosage: DABIGATRAN 75 MG PRADAXA PO
     Route: 048
     Dates: start: 20111115
  3. AMLODIPINE [Concomitant]
  4. OMEPRAZOLE [Concomitant]
  5. FELODIPINE [Concomitant]
  6. COMBIVENT INHALER (HOME MEDS) [Concomitant]

REACTIONS (6)
  - ACTIVATED PARTIAL THROMBOPLASTIN TIME PROLONGED [None]
  - DYSARTHRIA [None]
  - HEMIPARESIS [None]
  - SUBARACHNOID HAEMORRHAGE [None]
  - HAEMODIALYSIS [None]
  - BLOOD PRESSURE INADEQUATELY CONTROLLED [None]
